FAERS Safety Report 4701756-0 (Version None)
Quarter: 2005Q2

REPORT INFORMATION
  Report Type: 
  Country: None (occurrence: None)
  Receive Date: 20050627
  Receipt Date: 20050615
  Transmission Date: 20051028
  Serious: Yes (Hospitalization, Other)
  Sender: FDA-Public Use
  Company Number: HQWYE496403MAY05

PATIENT
  Age: 76 Year
  Sex: Female
  Weight: 65.4 kg

DRUGS (18)
  1. RAPAMUNE [Suspect]
     Indication: PROPHYLAXIS AGAINST TRANSPLANT REJECTION
     Dosage: 3 MG 1X PER 1 DAY
     Dates: start: 20050304
  2. CELLCEPT [Concomitant]
  3. PREDNISONE [Concomitant]
  4. VALCYTE [Concomitant]
  5. PROTONIX [Concomitant]
  6. MYCELEX [Concomitant]
  7. MULTIVITAMINS, PLAIN (MULTIVITAMINS, PLAIN) [Concomitant]
  8. BACTRIL (SULFAMETHOXAZOLE/TRIMETHOPRIM) [Concomitant]
  9. LASIX [Concomitant]
  10. IMDUR [Concomitant]
  11. HYDRALAZINE HCL [Concomitant]
  12. TOPROL-XL [Concomitant]
  13. PROCARDIA XL [Concomitant]
  14. ASPIRIN [Concomitant]
  15. ZOLOFT [Concomitant]
  16. K-PHOS (POTASSIUM PHOSPHATE MONOBASIC) [Concomitant]
  17. KLONOPIN [Concomitant]
  18. LOTREL [Concomitant]

REACTIONS (2)
  - CARDIAC FAILURE CONGESTIVE [None]
  - FLUID OVERLOAD [None]
